FAERS Safety Report 24781495 (Version 2)
Quarter: 2024Q4

REPORT INFORMATION
  Report Type: Report from Study
  Country: US (occurrence: US)
  Receive Date: 20241227
  Receipt Date: 20241230
  Transmission Date: 20250114
  Serious: No
  Sender: ACADIA PHARMACEUTICALS
  Company Number: US-ACADIA PHARMACEUTICALS INC.-ACA-2024-PIM-008717

PATIENT
  Age: 75 Year
  Sex: Female

DRUGS (13)
  1. NUPLAZID [Suspect]
     Active Substance: PIMAVANSERIN TARTRATE
     Indication: Parkinson^s disease
     Dosage: 34 MILLIGRAM, QD
     Route: 048
     Dates: start: 20240808, end: 20241217
  2. NIFEDIPINE [Concomitant]
     Active Substance: NIFEDIPINE
  3. CARBIDOPA LEVODOPA [Concomitant]
     Active Substance: CARBIDOPA\LEVODOPA
  4. LEVETIRACETAM [Concomitant]
     Active Substance: LEVETIRACETAM
  5. BACLOFEN [Concomitant]
     Active Substance: BACLOFEN
  6. HYDROCODONE [Concomitant]
     Active Substance: HYDROCODONE
  7. LEVOTHYROXINE [Concomitant]
     Active Substance: LEVOTHYROXINE
  8. CITALOPRAM [Concomitant]
     Active Substance: CITALOPRAM
  9. ROPINIROLE [Concomitant]
     Active Substance: ROPINIROLE
  10. AMANTADINE [Concomitant]
     Active Substance: AMANTADINE
  11. MAGNESIUM [Concomitant]
     Active Substance: MAGNESIUM
  12. LINZESS [Concomitant]
     Active Substance: LINACLOTIDE
  13. CLOPIDOGREL [Concomitant]
     Active Substance: CLOPIDOGREL BISULFATE

REACTIONS (2)
  - Dizziness [Recovered/Resolved]
  - Joint swelling [Recovered/Resolved]

NARRATIVE: CASE EVENT DATE: 20241215
